FAERS Safety Report 4282880-6 (Version None)
Quarter: 2004Q1

REPORT INFORMATION
  Report Type: 
  Country: None (occurrence: None)
  Receive Date: 20040130
  Receipt Date: 20030903
  Transmission Date: 20041129
  Serious: Yes (Hospitalization)
  Sender: FDA-Public Use
  Company Number: US-BRISTOL-MYERS SQUIBB COMPANY-12373221

PATIENT
  Sex: Male
  Weight: 89 kg

DRUGS (8)
  1. SERZONE [Suspect]
     Indication: DEPRESSION
     Dosage: 8-9 MONTHS AGO BEGAN SERZONE 25MG QD, UP TO 100MG QD FOR 1 MONTH,THEN 50MG QD FOR LAST 3-4MONTHS
     Route: 048
  2. DEPAKOTE [Concomitant]
     Indication: AGITATION
     Dosage: ON FOR 28-29 MONTHS
  3. NEURONTIN [Concomitant]
     Indication: BIPOLAR DISORDER
     Dosage: 300 MG 2-3 TIMES DAILY FOR 5 AND 1/2 YEARS
  4. LEVOXYL [Concomitant]
     Indication: HYPOTHYROIDISM
     Dosage: ON FOR YEARS
  5. LIPITOR [Concomitant]
     Indication: BLOOD CHOLESTEROL ABNORMAL
     Dosage: ON 20 MG FOR 2-3 YEARS
  6. VITAMIN B COMPLEX CAP [Concomitant]
  7. SELENIUM TRACE METAL ADDITIVE [Concomitant]
  8. VITAMIN C [Concomitant]

REACTIONS (5)
  - ANGER [None]
  - CHEST PAIN [None]
  - LIBIDO DECREASED [None]
  - PARANOIA [None]
  - SEXUAL DYSFUNCTION [None]
